FAERS Safety Report 8003921-6 (Version None)
Quarter: 2011Q4

REPORT INFORMATION
  Report Type: 
  Country: None (occurrence: None)
  Receive Date: 20111222
  Receipt Date: 20111213
  Transmission Date: 20120403
  Serious: Yes (Other)
  Sender: FDA-Public Use
  Company Number: US-CELGENEUS-163-21880-11083250

PATIENT
  Sex: Female

DRUGS (10)
  1. REVLIMID [Suspect]
     Dosage: 5 MILLIGRAM
     Route: 048
     Dates: start: 20110113
  2. VICODIN [Concomitant]
     Indication: PAIN
     Dosage: 40 MILLIGRAM
     Route: 065
  3. OMEPRAZOLE [Concomitant]
     Dosage: 20 MILLIGRAM
     Route: 048
  4. REVLIMID [Suspect]
     Dosage: 5 MILLIGRAM
     Route: 048
     Dates: start: 20110801
  5. TRAZODONE HCL [Concomitant]
     Dosage: 150 MILLIGRAM
     Route: 065
  6. XANAX [Concomitant]
     Indication: ANXIETY
     Dosage: 5 MILLIGRAM
     Route: 065
  7. OXYCODONE HCL [Concomitant]
     Indication: PAIN
     Dosage: 5 MILLIGRAM
     Route: 048
  8. REVLIMID [Suspect]
     Dosage: 25 MILLIGRAM
     Route: 048
     Dates: start: 20090601
  9. OXYCODONE HCL [Concomitant]
     Indication: PAIN
     Dosage: 80 MILLIGRAM
     Route: 065
  10. CITALOPRAM [Concomitant]
     Dosage: 25 MILLIGRAM
     Route: 048

REACTIONS (3)
  - OSTEOMYELITIS [None]
  - DRY SKIN [None]
  - PRURITUS [None]
